FAERS Safety Report 18790925 (Version 5)
Quarter: 2021Q1

REPORT INFORMATION
  Report Type: Report from Study
  Country: CN (occurrence: CN)
  Receive Date: 20210126
  Receipt Date: 20210304
  Transmission Date: 20210419
  Serious: Yes (Hospitalization)
  Sender: FDA-Public Use
  Company Number: CN-GILEAD-2021-0514130

PATIENT
  Age: 50 Year
  Sex: Female
  Weight: 58 kg

DRUGS (7)
  1. TRANEXAMIC ACID. [Concomitant]
     Active Substance: TRANEXAMIC ACID
     Route: 048
     Dates: start: 20210104, end: 20210104
  2. LEDIPASVIR/SOFOSBUVIR [Suspect]
     Active Substance: LEDIPASVIR\SOFOSBUVIR
     Indication: CHRONIC HEPATITIS C
     Dosage: 1 DOSAGE FORM, QD 400MG/90MG
     Route: 048
     Dates: start: 20200724, end: 20201021
  3. KUN NING KOU FU YE [Concomitant]
     Route: 048
     Dates: start: 20210104, end: 20210110
  4. KUN NING KOU FU YE [Concomitant]
     Indication: MENORRHAGIA
     Route: 048
     Dates: start: 20201222, end: 20201228
  5. TRANEXAMIC ACID. [Concomitant]
     Active Substance: TRANEXAMIC ACID
     Indication: HAEMORRHAGE
     Route: 048
     Dates: start: 20201222, end: 20201228
  6. METRONIDAZOLE. [Concomitant]
     Active Substance: METRONIDAZOLE
     Indication: INFECTION
     Route: 048
     Dates: start: 20210104, end: 20210110
  7. CEFACLOR. [Concomitant]
     Active Substance: CEFACLOR
     Indication: INFECTION
     Route: 048
     Dates: start: 20210104, end: 20210110

REACTIONS (5)
  - Uterine haemorrhage [Recovered/Resolved]
  - Menstruation irregular [Recovered/Resolved]
  - Hydrometra [Recovered/Resolved]
  - Cervical polyp [Recovered/Resolved]
  - Endometrial thickening [Recovered/Resolved]

NARRATIVE: CASE EVENT DATE: 20201222
